FAERS Safety Report 21748166 (Version 3)
Quarter: 2023Q2

REPORT INFORMATION
  Report Type: Spontaneous
  Country: AT (occurrence: AT)
  Receive Date: 20221219
  Receipt Date: 20230414
  Transmission Date: 20230721
  Serious: Yes (Other)
  Sender: FDA-Public Use
  Company Number: AT-009507513-2211AUT004114

PATIENT
  Age: 72 Year
  Sex: Female

DRUGS (6)
  1. CARBOPLATIN [Suspect]
     Active Substance: CARBOPLATIN
     Indication: Non-small cell lung cancer metastatic
     Dosage: UNK
     Dates: start: 201902
  2. PEMETREXED [Suspect]
     Active Substance: PEMETREXED
     Indication: Non-small cell lung cancer metastatic
     Dosage: UNK
     Dates: start: 201902
  3. KEYTRUDA [Suspect]
     Active Substance: PEMBROLIZUMAB
     Indication: Non-small cell lung cancer metastatic
     Dosage: UNK
     Dates: start: 2019
  4. PEMBROLIZUMAB [Suspect]
     Active Substance: PEMBROLIZUMAB
     Indication: Non-small cell lung cancer metastatic
     Dosage: UNK
     Dates: start: 201902
  5. PEMETREXED DISODIUM [Suspect]
     Active Substance: PEMETREXED DISODIUM
     Indication: Non-small cell lung cancer metastatic
     Dosage: UNK
     Dates: start: 2019
  6. PLATINUM [Suspect]
     Active Substance: PLATINUM
     Indication: Non-small cell lung cancer metastatic
     Dosage: UNK
     Dates: start: 2019

REACTIONS (26)
  - Renal arteriosclerosis [Unknown]
  - Myocarditis [Unknown]
  - Nephritis [Unknown]
  - Pericardial effusion [Unknown]
  - Tricuspid valve incompetence [Unknown]
  - Renal tubular necrosis [Unknown]
  - Blood lactate dehydrogenase increased [Unknown]
  - Blood creatinine increased [Unknown]
  - Chest discomfort [Unknown]
  - Blood uric acid increased [Unknown]
  - Protein total decreased [Unknown]
  - Blood albumin decreased [Unknown]
  - Blood urea increased [Unknown]
  - Tachycardia [Unknown]
  - Arteriosclerosis [Unknown]
  - Liver function test increased [Unknown]
  - Dyspnoea [Unknown]
  - Gamma-glutamyltransferase increased [Unknown]
  - Right ventricular hypertrophy [Unknown]
  - Fatigue [Unknown]
  - Blood calcium decreased [Unknown]
  - Blood sodium increased [Unknown]
  - Blood magnesium decreased [Unknown]
  - Troponin T increased [Unknown]
  - Hepatic enzyme increased [Unknown]
  - Blood potassium increased [Unknown]

NARRATIVE: CASE EVENT DATE: 20190601
